FAERS Safety Report 10585401 (Version 1)
Quarter: 2014Q4

REPORT INFORMATION
  Report Type: Spontaneous
  Country: IT (occurrence: IT)
  Receive Date: 20141114
  Receipt Date: 20141114
  Transmission Date: 20150529
  Serious: Yes (Hospitalization)
  Sender: FDA-Public Use
  Company Number: IT-ABBVIE-14P-083-1306820-00

PATIENT
  Age: 51 Year
  Sex: Male

DRUGS (4)
  1. XANAX [Suspect]
     Active Substance: ALPRAZOLAM
     Indication: DRUG ABUSE
     Dosage: 0.75 MG/ML ORAL DROPS
     Route: 048
     Dates: start: 20140821, end: 20140821
  2. CITALOPRAM [Suspect]
     Active Substance: CITALOPRAM HYDROBROMIDE
     Indication: DRUG ABUSE
     Dosage: 200 MILLIGRAMS TOTAL
     Route: 048
     Dates: start: 20140821, end: 20140821
  3. EN [Suspect]
     Active Substance: DELORAZEPAM
     Indication: DRUG ABUSE
     Dosage: 1 MG/ML ORAL DROPS
     Route: 048
     Dates: start: 20140821, end: 20140821
  4. DEPAKINE CHRONO [Suspect]
     Active Substance: VALPROATE SODIUM
     Indication: DRUG ABUSE
     Dosage: EXTENDED RELEASE; 300 MG PROLONGED RELEASE TABLETS AT A DOSE OF 10 DOSAGE UNITS
     Route: 048
     Dates: start: 20140821, end: 20140821

REACTIONS (3)
  - Drug abuse [Unknown]
  - Vomiting [Unknown]
  - Asthenia [Unknown]

NARRATIVE: CASE EVENT DATE: 20140821
